FAERS Safety Report 5018702-5 (Version None)
Quarter: 2006Q2

REPORT INFORMATION
  Report Type: 
  Country: None (occurrence: None)
  Receive Date: 20060605
  Receipt Date: 20060526
  Transmission Date: 20061013
  Serious: Yes (Hospitalization)
  Sender: FDA-Public Use
  Company Number: TR-ABBOTT-06P-161-0334329-00

PATIENT
  Age: 25 Year
  Sex: Male

DRUGS (1)
  1. TARKA [Suspect]
     Indication: SUICIDE ATTEMPT
     Route: 048
     Dates: start: 20060525, end: 20060525

REACTIONS (4)
  - BRADYCARDIA [None]
  - HYPOTENSION [None]
  - LOSS OF CONSCIOUSNESS [None]
  - RENAL FAILURE [None]
